FAERS Safety Report 18585329 (Version 2)
Quarter: 2020Q4

REPORT INFORMATION
  Report Type: Spontaneous
  Country: CN (occurrence: CN)
  Receive Date: 20201207
  Receipt Date: 20201228
  Transmission Date: 20210114
  Serious: Yes (Other)
  Sender: FDA-Public Use
  Company Number: NVSC2020CN322182

PATIENT
  Age: 55 Year
  Sex: Male

DRUGS (2)
  1. DIOVAN [Suspect]
     Active Substance: VALSARTAN
     Indication: HYPERTENSION
     Dosage: UNK ((STARTED ABOUT 10 YEARS AGO))
     Route: 048
  2. LOTENSIN [Suspect]
     Active Substance: BENAZEPRIL HYDROCHLORIDE
     Indication: HYPERTENSION
     Dosage: UNK (STARTED ABOUT 10 YEARS AGO)
     Route: 048

REACTIONS (8)
  - Palpitations [Unknown]
  - Blood pressure inadequately controlled [Unknown]
  - Arthralgia [Unknown]
  - Fatigue [Unknown]
  - Headache [Unknown]
  - Drug ineffective [Unknown]
  - Dizziness [Unknown]
  - Chest pain [Unknown]
